FAERS Safety Report 21760398 (Version 1)
Quarter: 2022Q4

REPORT INFORMATION
  Report Type: Spontaneous
  Country: US (occurrence: None)
  Receive Date: 20221220
  Receipt Date: 20221220
  Transmission Date: 20230113
  Serious: Yes (unspecified)
  Sender: FDA-Public Use
  Company Number: None

PATIENT
  Age: 24 Year
  Sex: Female
  Weight: 49.3 kg

DRUGS (5)
  1. VENOFER [Suspect]
     Active Substance: IRON SUCROSE
     Indication: Iron deficiency anaemia
     Dosage: OTHER FREQUENCY : ONE TIME INFUSION;?
     Route: 041
     Dates: start: 20221216, end: 20221216
  2. VENOFER [Suspect]
     Active Substance: IRON SUCROSE
     Indication: Thalassaemia
  3. Diphenhydramine 25 mg IVP [Concomitant]
     Dates: start: 20221216, end: 20221216
  4. FAMOTIDINE [Concomitant]
     Active Substance: FAMOTIDINE
     Dates: start: 20221216, end: 20221216
  5. EPIPEN [Concomitant]
     Active Substance: EPINEPHRINE
     Dates: start: 20221216, end: 20221216

REACTIONS (4)
  - Infusion related reaction [None]
  - Paraesthesia [None]
  - Peripheral swelling [None]
  - Gait inability [None]

NARRATIVE: CASE EVENT DATE: 20221216
